FAERS Safety Report 19894308 (Version 1)
Quarter: 2021Q3

REPORT INFORMATION
  Report Type: Spontaneous
  Country: US (occurrence: US)
  Receive Date: 20210928
  Receipt Date: 20210928
  Transmission Date: 20211014
  Serious: Yes (Death)
  Sender: FDA-Public Use
  Company Number: None

PATIENT
  Sex: Female

DRUGS (3)
  1. OMEPRAZOLE CAP 4OMG [Concomitant]
  2. MULTI?VITAMN TAB [Concomitant]
  3. ESBRIET [Suspect]
     Active Substance: PIRFENIDONE
     Dosage: ?          OTHER FREQUENCY:SEE B.6(PAGE2);?
     Route: 048

REACTIONS (1)
  - Death [None]
